FAERS Safety Report 10583273 (Version 1)
Quarter: 2014Q4

REPORT INFORMATION
  Report Type: Spontaneous
  Country: DE (occurrence: DE)
  Receive Date: 20141114
  Receipt Date: 20141114
  Transmission Date: 20150529
  Serious: Yes (Other)
  Sender: FDA-Public Use
  Company Number: DE-SUN PHARMACEUTICAL INDUSTRIES LTD-2014SUN02653

PATIENT
  Sex: Female
  Weight: 1.84 kg

DRUGS (2)
  1. GEMCITABINE [Suspect]
     Active Substance: GEMCITABINE\GEMCITABINE HYDROCHLORIDE
     Indication: CHOLANGIOCARCINOMA
     Dosage: 1000 MG/M2, ON DAYS 1 AND 8 OF A 21-DAY CYCLE
     Route: 064
  2. CISPLATIN. [Concomitant]
     Active Substance: CISPLATIN
     Dosage: 50 MG/M2, ON DAY 1 OF A 21-DAY CYCLE

REACTIONS (2)
  - Foetal exposure during pregnancy [None]
  - Premature baby [Unknown]
